FAERS Safety Report 4421662-9 (Version None)
Quarter: 2004Q3

REPORT INFORMATION
  Report Type: 
  Country: None (occurrence: None)
  Receive Date: 20040804
  Receipt Date: 20040719
  Transmission Date: 20050211
  Serious: Yes (Other)
  Sender: FDA-Public Use
  Company Number: US013488

PATIENT
  Age: 40 Year
  Sex: Male

DRUGS (1)
  1. ACTIQ [Suspect]
     Indication: PREMEDICATION
     Dosage: 800 UG BUCCAL
     Route: 002

REACTIONS (1)
  - RESPIRATORY DEPRESSION [None]
